FAERS Safety Report 8801013 (Version 1)
Quarter: 2012Q4

REPORT INFORMATION
  Report Type: 
  Country: CH (occurrence: CH)
  Receive Date: 20120920
  Receipt Date: 20120920
  Transmission Date: 20130627
  Serious: Yes (Hospitalization)
  Sender: FDA-Public Use
  Company Number: CH-MYLANLABS-2012S1018764

PATIENT
  Age: 78 Year
  Sex: Male

DRUGS (3)
  1. OCTREOTIDE [Suspect]
     Dosage: 10mg every 6wks
     Route: 065
  2. COTRIMOXAZOLE [Suspect]
     Indication: URINARY TRACT INFECTION
     Route: 065
  3. CIPROFLOXACIN [Suspect]
     Indication: URINARY TRACT INFECTION
     Route: 065

REACTIONS (5)
  - Renal failure acute [Recovering/Resolving]
  - Nephropathy [Recovering/Resolving]
  - Kidney fibrosis [Recovering/Resolving]
  - Hyperoxaluria [Recovering/Resolving]
  - Nephritis allergic [Recovering/Resolving]
